FAERS Safety Report 4436032-7 (Version None)
Quarter: 2004Q3

REPORT INFORMATION
  Report Type: 
  Country: None (occurrence: None)
  Receive Date: 20040826
  Receipt Date: 20040815
  Transmission Date: 20050211
  Serious: Yes (Death, Hospitalization)
  Sender: FDA-Public Use
  Company Number: 163-20785-03110574

PATIENT
  Age: 53 Year
  Sex: Male
  Weight: 97.5234 kg

DRUGS (3)
  1. THALOMID [Suspect]
     Indication: GLIOMA
     Dosage: 400 MG, QHS, ORAL
     Route: 048
     Dates: start: 20031029, end: 20031121
  2. IRINOTECAN (IRINOTECAN) [Suspect]
     Indication: GLIOMA
     Dosage: 216 MG, WEEKLY, INTRAVENOUS
     Route: 042
     Dates: start: 20031121, end: 20031121
  3. DOXYCYCLINE [Suspect]
     Indication: GLIOMA
     Dates: start: 20031029, end: 20031101

REACTIONS (6)
  - CHILLS [None]
  - DEHYDRATION [None]
  - MENTAL STATUS CHANGES [None]
  - PULMONARY EMBOLISM [None]
  - PYREXIA [None]
  - WHITE BLOOD CELL COUNT DECREASED [None]
